FAERS Safety Report 14159369 (Version 1)
Quarter: 2017Q4

REPORT INFORMATION
  Report Type: Spontaneous
  Country: US (occurrence: US)
  Receive Date: 20171103
  Receipt Date: 20171103
  Transmission Date: 20180321
  Serious: No
  Sender: FDA-Public Use
  Company Number: US-ROMARKLABS-2017-US-000127

PATIENT
  Age: 14 Year
  Sex: Female
  Weight: 72.58 kg

DRUGS (2)
  1. 1MD COMPLETE DIGESTIVE ENZYMES [Concomitant]
     Indication: CLOSTRIDIUM DIFFICILE INFECTION
     Route: 048
     Dates: start: 20171003
  2. ALINIA [Suspect]
     Active Substance: NITAZOXANIDE
     Indication: CLOSTRIDIUM DIFFICILE INFECTION
     Route: 048
     Dates: start: 20171003

REACTIONS (2)
  - Headache [Not Recovered/Not Resolved]
  - Chromaturia [Not Recovered/Not Resolved]

NARRATIVE: CASE EVENT DATE: 20171003
